FAERS Safety Report 11191641 (Version 1)
Quarter: 2015Q2

REPORT INFORMATION
  Report Type: Spontaneous
  Country: FR (occurrence: FR)
  Receive Date: 20150616
  Receipt Date: 20150616
  Transmission Date: 20150821
  Serious: Yes (Death)
  Sender: FDA-Public Use
  Company Number: FR-ASTRAZENECA-2015SE56861

PATIENT
  Age: 3217 Week
  Sex: Male

DRUGS (8)
  1. ATORVASTATINE [Concomitant]
     Active Substance: ATORVASTATIN
     Route: 048
     Dates: start: 20150421
  2. INSPRA [Concomitant]
     Active Substance: EPLERENONE
     Route: 048
     Dates: start: 20150421
  3. ALPRAZOLAM. [Concomitant]
     Active Substance: ALPRAZOLAM
     Route: 048
     Dates: start: 20150421
  4. BISOPROLOL [Concomitant]
     Active Substance: BISOPROLOL
     Route: 048
     Dates: start: 20150421
  5. RAMIPRIL. [Concomitant]
     Active Substance: RAMIPRIL
     Route: 048
     Dates: start: 20150421
  6. BRILIQUE [Suspect]
     Active Substance: TICAGRELOR
     Route: 048
     Dates: start: 20150421
  7. KARDEGIC [Suspect]
     Active Substance: ASPIRIN LYSINE
     Route: 048
     Dates: start: 20150421
  8. ESOMEPRAZOLE [Concomitant]
     Active Substance: ESOMEPRAZOLE
     Route: 048
     Dates: start: 20150421

REACTIONS (2)
  - Fall [Fatal]
  - Cerebral haematoma [Fatal]

NARRATIVE: CASE EVENT DATE: 20150524
